FAERS Safety Report 12523688 (Version 1)
Quarter: 2016Q3

REPORT INFORMATION
  Report Type: Spontaneous
  Country: US (occurrence: US)
  Receive Date: 20160704
  Receipt Date: 20160704
  Transmission Date: 20161109
  Serious: No
  Sender: FDA-Public Use
  Company Number: US-AMGEN-USASP2016084274

PATIENT
  Age: 60 Year
  Sex: Male
  Weight: 89.98 kg

DRUGS (3)
  1. NIACIN. [Concomitant]
     Active Substance: NIACIN
     Dosage: UNK
  2. ENBREL [Suspect]
     Active Substance: ETANERCEPT
     Indication: PSORIATIC ARTHROPATHY
  3. ENBREL [Suspect]
     Active Substance: ETANERCEPT
     Indication: PSORIASIS
     Dosage: 50 MG, QWK
     Route: 058
     Dates: start: 20150106

REACTIONS (3)
  - Drug ineffective [Unknown]
  - Memory impairment [Unknown]
  - Injection site pain [Unknown]
